FAERS Safety Report 20447465 (Version 1)
Quarter: 2022Q1

REPORT INFORMATION
  Report Type: Spontaneous
  Country: US (occurrence: None)
  Receive Date: 20220209
  Receipt Date: 20220209
  Transmission Date: 20220424
  Serious: Yes (Other)
  Sender: FDA-Public Use
  Company Number: US-ROCHE-2950111

PATIENT
  Age: 64 Year
  Sex: Female

DRUGS (4)
  1. ROZLYTREK [Suspect]
     Active Substance: ENTRECTINIB
     Indication: Neoplasm malignant
     Route: 048
     Dates: start: 201911
  2. GABAPENTIN [Concomitant]
     Active Substance: GABAPENTIN
  3. ELIQUIS [Concomitant]
     Active Substance: APIXABAN
  4. VITAMIN D3 [Concomitant]
     Active Substance: CHOLECALCIFEROL

REACTIONS (10)
  - Dizziness [Unknown]
  - Lower limb fracture [Unknown]
  - Rib fracture [Unknown]
  - Weight increased [Unknown]
  - Rash [Unknown]
  - Tremor [Unknown]
  - Abdominal distension [Unknown]
  - Blood potassium increased [Unknown]
  - Fatigue [Unknown]
  - Syncope [Unknown]

NARRATIVE: CASE EVENT DATE: 20191101
